FAERS Safety Report 26129047 (Version 1)
Quarter: 2025Q4

REPORT INFORMATION
  Report Type: Report from Study
  Country: CA (occurrence: CA)
  Receive Date: 20251208
  Receipt Date: 20251208
  Transmission Date: 20260117
  Serious: Yes (Hospitalization)
  Sender: CSL BEHRING
  Company Number: CA-BEH-VIT-2024-05734

PATIENT
  Age: 82 Year
  Sex: Female

DRUGS (3)
  1. VELTASSA [Suspect]
     Active Substance: PATIROMER
     Indication: Hyperkalaemia
     Dosage: 8.4,G,QD
     Route: 048
     Dates: start: 20230307
  2. VELTASSA [Suspect]
     Active Substance: PATIROMER
     Dosage: 3 MONTHS
     Route: 048
     Dates: start: 20240624
  3. PREDNISONE [Concomitant]
     Active Substance: PREDNISONE
     Dosage: DAILY X 5 TABLETS (X1 IF NEEDED).
     Route: 048

REACTIONS (2)
  - Hospitalisation [Unknown]
  - Off label use [Unknown]

NARRATIVE: CASE EVENT DATE: 20240624
